FAERS Safety Report 10417857 (Version 1)
Quarter: 2014Q2

REPORT INFORMATION
  Report Type: Spontaneous
  Country: US (occurrence: None)
  Receive Date: 20140609
  Receipt Date: 20140609
  Transmission Date: 20141212
  Serious: No
  Sender: FDA-Public Use
  Company Number: 2014TUS000896

PATIENT
  Sex: Female

DRUGS (1)
  1. BRINTELLIX [Suspect]
     Route: 048

REACTIONS (2)
  - Aggression [None]
  - Agitation [None]
